FAERS Safety Report 13159134 (Version 2)
Quarter: 2017Q1

REPORT INFORMATION
  Report Type: Spontaneous
  Country: US (occurrence: US)
  Receive Date: 20170127
  Receipt Date: 20170213
  Transmission Date: 20170428
  Serious: Yes (Other)
  Sender: FDA-Public Use
  Company Number: US-JNJFOC-20170115156

PATIENT
  Age: 17 Year
  Sex: Female
  Weight: 65.77 kg

DRUGS (2)
  1. LISTERINE HEALTHYWHITE ANTICAVITY MOUTHRINSE VIBRANT - CLEAN MINT [Suspect]
     Active Substance: SODIUM FLUORIDE
     Indication: DENTAL CARE
     Dosage: RECOMMENDED DOSAGE
     Route: 048
     Dates: start: 20170106, end: 20170113
  2. LISTERINE HEALTHYWHITE ANTICAVITY MOUTHRINSE VIBRANT - CLEAN MINT [Suspect]
     Active Substance: SODIUM FLUORIDE
     Indication: DENTAL DISORDER PROPHYLAXIS
     Dosage: RECOMMENDED DOSAGE
     Route: 048
     Dates: start: 20170106, end: 20170113

REACTIONS (1)
  - Chemical burn of gastrointestinal tract [Recovered/Resolved]

NARRATIVE: CASE EVENT DATE: 20170106
